FAERS Safety Report 8352987-2 (Version None)
Quarter: 2012Q2

REPORT INFORMATION
  Report Type: 
  Country: None (occurrence: None)
  Receive Date: 20120511
  Receipt Date: 20120501
  Transmission Date: 20120825
  Serious: Yes (Hospitalization)
  Sender: FDA-Public Use
  Company Number: CA-NOVOPROD-350882

PATIENT
  Age: 53 Year
  Sex: Male
  Weight: 91.8 kg

DRUGS (14)
  1. LEVEMIR [Suspect]
     Indication: PRODUCT USED FOR UNKNOWN INDICATION
     Dosage: UNK
     Route: 065
  2. GLICLAZIDE [Suspect]
     Indication: PRODUCT USED FOR UNKNOWN INDICATION
     Dosage: UNK
     Route: 065
  3. METOPROLOL TARTRATE [Suspect]
     Dosage: UNK
     Route: 065
  4. SORAFENIB [Suspect]
     Indication: RENAL CELL CARCINOMA
     Dosage: 400 MG, BID, TOTAL DOSE 33600 MG
     Route: 048
     Dates: end: 20100824
  5. SORAFENIB [Suspect]
     Dosage: UNK
  6. AVANDAMET [Suspect]
     Indication: PRODUCT USED FOR UNKNOWN INDICATION
     Dosage: UNK
     Route: 065
  7. ASPIRIN [Concomitant]
     Dosage: UNK
     Route: 065
  8. AVALIDE [Concomitant]
  9. CADUET [Concomitant]
     Dosage: UNK
  10. SUNITINIB MALATE [Suspect]
     Dosage: UNK
     Route: 065
  11. JANUVIA [Suspect]
     Indication: PRODUCT USED FOR UNKNOWN INDICATION
     Dosage: UNK
     Route: 065
  12. SUNITINIB MALATE [Suspect]
     Indication: RENAL CELL CARCINOMA
     Dosage: 50 MG, QD (WEEKS 1-4)
     Route: 065
     Dates: start: 20091216
  13. SUNITINIB MALATE [Suspect]
     Dosage: TOTAL DOSE 1400 MG
     Route: 065
     Dates: end: 20100810
  14. LISINOPRIL [Concomitant]

REACTIONS (2)
  - METABOLIC ACIDOSIS [None]
  - HYPOGLYCAEMIA [None]
